FAERS Safety Report 7638192-3 (Version None)
Quarter: 2011Q3

REPORT INFORMATION
  Report Type: 
  Country: None (occurrence: None)
  Receive Date: 20110722
  Receipt Date: 20110722
  Transmission Date: 20111222
  Serious: Yes (Hospitalization)
  Sender: FDA-Public Use
  Company Number: None

PATIENT
  Sex: Male
  Weight: 62.14 kg

DRUGS (3)
  1. TARCEVA [Suspect]
     Dosage: 1600 MG
  2. GEMCITABINE HYDROCHLORIDE [Suspect]
     Dosage: 3560 MG
  3. LISINOPRIL [Concomitant]

REACTIONS (11)
  - LUNG HYPERINFLATION [None]
  - HYPOTENSION [None]
  - DYSPHAGIA [None]
  - DECREASED APPETITE [None]
  - FATIGUE [None]
  - DEHYDRATION [None]
  - NAUSEA [None]
  - VOMITING [None]
  - DYSPHONIA [None]
  - OROPHARYNGEAL PAIN [None]
  - MALAISE [None]
